FAERS Safety Report 17088943 (Version 1)
Quarter: 2019Q4

REPORT INFORMATION
  Report Type: Spontaneous
  Country: US (occurrence: US)
  Receive Date: 20191128
  Receipt Date: 20191128
  Transmission Date: 20200122
  Serious: Yes (Hospitalization)
  Sender: FDA-Public Use
  Company Number: US-SHIRE-US201939822

PATIENT
  Age: 7 Year
  Sex: Female

DRUGS (1)
  1. GATTEX [Suspect]
     Active Substance: TEDUGLUTIDE\WATER
     Indication: PRODUCT USED FOR UNKNOWN INDICATION
     Dosage: 0.0900 UNIT UNKNOWN
     Route: 058
     Dates: start: 20190826

REACTIONS (1)
  - Viral infection [Recovering/Resolving]

NARRATIVE: CASE EVENT DATE: 20191114
